FAERS Safety Report 13632560 (Version 1)
Quarter: 2017Q2

REPORT INFORMATION
  Report Type: Spontaneous
  Country: PH (occurrence: PH)
  Receive Date: 20170608
  Receipt Date: 20170608
  Transmission Date: 20170830
  Serious: Yes (Death)
  Sender: FDA-Public Use
  Company Number: PH-ROCHE-1944847

PATIENT
  Age: 70 Year
  Sex: Female

DRUGS (2)
  1. MABTHERA [Suspect]
     Active Substance: RITUXIMAB
     Indication: PRODUCT USED FOR UNKNOWN INDICATION
     Route: 065
  2. MABTHERA [Suspect]
     Active Substance: RITUXIMAB
     Route: 065

REACTIONS (2)
  - Asthenia [Unknown]
  - Death [Fatal]

NARRATIVE: CASE EVENT DATE: 20170509
